FAERS Safety Report 6939634-9 (Version None)
Quarter: 2010Q3

REPORT INFORMATION
  Report Type: 
  Country: None (occurrence: None)
  Receive Date: 20100825
  Receipt Date: 20100820
  Transmission Date: 20110219
  Serious: Yes (Death)
  Sender: FDA-Public Use
  Company Number: KR-BRISTOL-MYERS SQUIBB COMPANY-15249071

PATIENT
  Age: 54 Year
  Sex: Male

DRUGS (2)
  1. CISPLATIN [Suspect]
     Indication: LUNG NEOPLASM MALIGNANT
  2. FLUOROURACIL [Suspect]
     Indication: LUNG NEOPLASM MALIGNANT
     Dosage: ON DAY 1 -3

REACTIONS (1)
  - ARTERIAL THROMBOSIS [None]
